FAERS Safety Report 12258028 (Version 1)
Quarter: 2016Q2

REPORT INFORMATION
  Report Type: Spontaneous
  Country: CA (occurrence: CA)
  Receive Date: 20160412
  Receipt Date: 20160412
  Transmission Date: 20160815
  Serious: Yes (Other)
  Sender: FDA-Public Use
  Company Number: CA-009507513-1604CAN005827

PATIENT
  Age: 44 Year
  Sex: Female
  Weight: 59.5 kg

DRUGS (1)
  1. KEYTRUDA [Suspect]
     Active Substance: PEMBROLIZUMAB
     Indication: MALIGNANT MELANOMA
     Dosage: UNK, Q3W
     Route: 042

REACTIONS (1)
  - Sinusitis [Recovering/Resolving]

NARRATIVE: CASE EVENT DATE: 20160401
